FAERS Safety Report 19268534 (Version 1)
Quarter: 2021Q2

REPORT INFORMATION
  Report Type: Report from Study
  Country: CA (occurrence: CA)
  Receive Date: 20210517
  Receipt Date: 20210517
  Transmission Date: 20210717
  Serious: Yes (Hospitalization)
  Sender: FDA-Public Use
  Company Number: CA-BAUSCH-BL-2021-016330

PATIENT
  Age: 88 Year
  Sex: Male

DRUGS (3)
  1. IXAZOMIB [Suspect]
     Active Substance: IXAZOMIB
     Indication: PLASMA CELL MYELOMA
     Route: 048
  2. IXAZOMIB [Suspect]
     Active Substance: IXAZOMIB
     Route: 048
  3. DEXAMETHASONE. [Suspect]
     Active Substance: DEXAMETHASONE
     Indication: PLASMA CELL MYELOMA
     Route: 065

REACTIONS (7)
  - Depressed level of consciousness [Unknown]
  - Dysarthria [Unknown]
  - Facial paralysis [Unknown]
  - Nasopharyngitis [Unknown]
  - Sepsis [Unknown]
  - Confusional state [Unknown]
  - Off label use [Unknown]
